FAERS Safety Report 11510749 (Version 2)
Quarter: 2015Q3

REPORT INFORMATION
  Report Type: Spontaneous
  Country: US (occurrence: US)
  Receive Date: 20150915
  Receipt Date: 20150922
  Transmission Date: 20151125
  Serious: Yes (Hospitalization)
  Sender: FDA-Public Use
  Company Number: US-PFIZER INC-2015308515

PATIENT
  Age: 66 Year
  Sex: Female
  Weight: 50 kg

DRUGS (3)
  1. LIPITOR [Suspect]
     Active Substance: ATORVASTATIN CALCIUM
     Indication: BLOOD CHOLESTEROL INCREASED
     Dosage: 20 MG, 1X/DAY
     Route: 048
     Dates: start: 20150728
  2. VFEND [Interacting]
     Active Substance: VORICONAZOLE
     Dosage: UNK, 1X/DAY
  3. VFEND [Interacting]
     Active Substance: VORICONAZOLE
     Indication: PULMONARY MYCOSIS
     Dosage: UNK, 2X/DAY
     Dates: start: 201409

REACTIONS (3)
  - Intracranial aneurysm [Unknown]
  - Circumstance or information capable of leading to medication error [Unknown]
  - Drug interaction [Unknown]
